APPROVED DRUG PRODUCT: FOCINVEZ
Active Ingredient: FOSAPREPITANT DIMEGLUMINE
Strength: EQ 150MG BASE/50ML (EQ 3MG BASE/ML)
Dosage Form/Route: SOLUTION;INTRAVENOUS
Application: N216686 | Product #001
Applicant: STERISCIENCE PTE LTD
Approved: Aug 22, 2023 | RLD: Yes | RS: Yes | Type: RX

PATENTS:
Patent 12042504 | Expires: Jan 11, 2039
Patent 11065265 | Expires: Jan 11, 2039